FAERS Safety Report 6559392-X (Version None)
Quarter: 2010Q1

REPORT INFORMATION
  Report Type: 
  Country: None (occurrence: None)
  Receive Date: 20100129
  Receipt Date: 20090831
  Transmission Date: 20100710
  Serious: No
  Sender: FDA-Public Use
  Company Number: US-ABBOTT-09P-163-0594804-00

PATIENT
  Sex: Female
  Weight: 108.96 kg

DRUGS (7)
  1. HUMIRA [Suspect]
     Indication: PSORIASIS
     Route: 058
     Dates: start: 20090709
  2. PRILOSEC [Concomitant]
     Indication: DRUG USE FOR UNKNOWN INDICATION
  3. MOBIC [Concomitant]
     Indication: DRUG USE FOR UNKNOWN INDICATION
  4. UNKNOWN BIRTH CONTROL PILL [Concomitant]
     Indication: DRUG USE FOR UNKNOWN INDICATION
  5. LYRICA [Concomitant]
     Indication: DRUG USE FOR UNKNOWN INDICATION
  6. ROZEREM [Concomitant]
     Indication: DRUG USE FOR UNKNOWN INDICATION
  7. PROTONIX [Concomitant]
     Indication: DRUG USE FOR UNKNOWN INDICATION

REACTIONS (3)
  - DRUG DOSE OMISSION [None]
  - FURUNCLE [None]
  - STAPHYLOCOCCAL INFECTION [None]
